FAERS Safety Report 6164264-9 (Version None)
Quarter: 2009Q2

REPORT INFORMATION
  Report Type: 
  Country: None (occurrence: None)
  Receive Date: 20090420
  Receipt Date: 20090403
  Transmission Date: 20091009
  Serious: Yes (Other)
  Sender: FDA-Public Use
  Company Number: 8039053

PATIENT
  Age: 74 Year
  Sex: Female
  Weight: 72 kg

DRUGS (4)
  1. KEPPRA [Suspect]
     Indication: CONVULSION
     Dosage: 3000 MG /D
     Dates: start: 20080918, end: 20081004
  2. ROCEPHIN [Suspect]
     Indication: ASPIRATION
     Dosage: 4 G ONCE IV
     Route: 042
     Dates: start: 20080918, end: 20080923
  3. CLEXANE [Suspect]
     Indication: THROMBOSIS PROPHYLAXIS
     Dosage: SC
     Route: 058
  4. MERONEM [Suspect]
     Indication: PNEUMONIA
     Dates: start: 20080923

REACTIONS (1)
  - HYPONATRAEMIA [None]
